FAERS Safety Report 17350226 (Version 1)
Quarter: 2020Q1

REPORT INFORMATION
  Report Type: Spontaneous
  Country: DE (occurrence: DE)
  Receive Date: 20200130
  Receipt Date: 20200130
  Transmission Date: 20200409
  Serious: Yes (Other)
  Sender: FDA-Public Use
  Company Number: DE-FERRINGPH-2020FE00256

PATIENT
  Age: 8 Year
  Sex: Male

DRUGS (1)
  1. DESMOPRESSIN [Suspect]
     Active Substance: DESMOPRESSIN
     Indication: ENURESIS
     Dosage: 1 TABLET 1H BEFORE GOING TO SLEEP
     Route: 048
     Dates: start: 2018, end: 2018

REACTIONS (7)
  - Hallucination, visual [Recovered/Resolved]
  - Anxiety [Recovered/Resolved]
  - Fear of death [Recovered/Resolved]
  - Conversion disorder [Recovered/Resolved]
  - Delusion [Recovered/Resolved]
  - Screaming [Recovered/Resolved]
  - Nightmare [Recovered/Resolved]

NARRATIVE: CASE EVENT DATE: 2018
